FAERS Safety Report 15039664 (Version 1)
Quarter: 2018Q2

REPORT INFORMATION
  Report Type: Report from Study
  Country: DE (occurrence: DE)
  Receive Date: 20180620
  Receipt Date: 20180620
  Transmission Date: 20180711
  Serious: Yes (Hospitalization)
  Sender: FDA-Public Use
  Company Number: DE-BIOGEN-2018BI00525033

PATIENT
  Age: 35 Year
  Sex: Female
  Weight: 72 kg

DRUGS (9)
  1. TYSABRI [Suspect]
     Active Substance: NATALIZUMAB
     Indication: MULTIPLE SCLEROSIS
     Route: 042
     Dates: start: 20071115
  2. TYSABRI [Suspect]
     Active Substance: NATALIZUMAB
     Route: 042
  3. MIRTAZAPINE. [Concomitant]
     Active Substance: MIRTAZAPINE
     Indication: DEPRESSION
     Route: 048
     Dates: start: 201610
  4. MELPERONE [Concomitant]
     Active Substance: MELPERONE
     Indication: DEPRESSION
     Route: 048
     Dates: start: 2016
  5. PERAZINE [Concomitant]
     Active Substance: PERAZINE
     Indication: DEPRESSION
     Dosage: UP TO 4 TABLETS/DAY
     Route: 048
     Dates: start: 20171212
  6. MIRTAZAPINE. [Concomitant]
     Active Substance: MIRTAZAPINE
     Dosage: IN THE EVENING
     Route: 048
     Dates: start: 20080124, end: 201610
  7. PANTOPRAZOLE [Concomitant]
     Active Substance: PANTOPRAZOLE
     Indication: PROPHYLAXIS
     Route: 048
     Dates: start: 201712
  8. ESCITALOPRAM [Concomitant]
     Active Substance: ESCITALOPRAM OXALATE
     Indication: DEPRESSION
     Route: 048
     Dates: start: 2016
  9. ZOLPIDEM [Concomitant]
     Active Substance: ZOLPIDEM\ZOLPIDEM TARTRATE
     Indication: DEPRESSION
     Route: 048
     Dates: start: 201712

REACTIONS (1)
  - Multiple sclerosis [Recovered/Resolved]

NARRATIVE: CASE EVENT DATE: 201710
